FAERS Safety Report 6711409-5 (Version None)
Quarter: 2010Q2

REPORT INFORMATION
  Report Type: 
  Country: None (occurrence: None)
  Receive Date: 20100505
  Receipt Date: 20100426
  Transmission Date: 20101027
  Serious: Yes (Hospitalization)
  Sender: FDA-Public Use
  Company Number: FR-PFIZER INC-2010051995

PATIENT
  Age: 53 Year
  Sex: Female

DRUGS (1)
  1. RELPAX [Suspect]
     Indication: MIGRAINE
     Dosage: 1 DF, SINGLE
     Route: 048
     Dates: start: 20090607, end: 20090607

REACTIONS (1)
  - ISCHAEMIC STROKE [None]
